FAERS Safety Report 7607579-7 (Version None)
Quarter: 2011Q3

REPORT INFORMATION
  Report Type: 
  Country: None (occurrence: None)
  Receive Date: 20110713
  Receipt Date: 20110701
  Transmission Date: 20111222
  Serious: Yes (Hospitalization)
  Sender: FDA-Public Use
  Company Number: PHHY2011US57569

PATIENT
  Sex: Male
  Weight: 17.8 kg

DRUGS (1)
  1. EXJADE [Suspect]
     Dosage: 625 MG, QD
     Route: 048

REACTIONS (1)
  - INFECTION [None]
